FAERS Safety Report 10177511 (Version 2)
Quarter: 2014Q2

REPORT INFORMATION
  Report Type: Spontaneous
  Country: GR (occurrence: GR)
  Receive Date: 20140516
  Receipt Date: 20140616
  Transmission Date: 20141212
  Serious: Yes (Hospitalization)
  Sender: FDA-Public Use
  Company Number: GR-ABBVIE-14P-066-1236132-00

PATIENT
  Age: 46 Year
  Sex: Female

DRUGS (5)
  1. HUMIRA [Suspect]
     Indication: PSORIATIC ARTHROPATHY
     Route: 058
     Dates: start: 20061227, end: 20140505
  2. CORTISONE [Concomitant]
     Indication: RHEUMATOID ARTHRITIS
  3. PREZOLON [Concomitant]
     Indication: PSORIATIC ARTHROPATHY
  4. ADENURIC [Concomitant]
     Indication: HYPERURICAEMIA
  5. CRESTOR [Concomitant]
     Indication: HYPERCHOLESTEROLAEMIA

REACTIONS (3)
  - Blood creatinine increased [Unknown]
  - Nausea [Unknown]
  - Blood urea increased [Unknown]
